FAERS Safety Report 25885750 (Version 2)
Quarter: 2025Q4

REPORT INFORMATION
  Report Type: Spontaneous
  Country: CA (occurrence: CA)
  Receive Date: 20251006
  Receipt Date: 20251126
  Transmission Date: 20260118
  Serious: Yes (Other)
  Sender: PFIZER
  Company Number: CA-PFIZER INC-202500064022

PATIENT
  Age: 55 Year
  Sex: Female
  Weight: 74 kg

DRUGS (4)
  1. IXIFI [Suspect]
     Active Substance: INFLIXIMAB-QBTX
     Indication: Colitis ulcerative
     Dosage: 400 MG, EVERY 7 WEEKS
     Route: 042
     Dates: start: 20250625
  2. IXIFI [Suspect]
     Active Substance: INFLIXIMAB-QBTX
     Dosage: 400 MG, EVERY 7 WEEKS FOR 12 MONTHS
     Route: 042
     Dates: start: 20250813
  3. IXIFI [Suspect]
     Active Substance: INFLIXIMAB-QBTX
     Dosage: 400 MG, EVERY 7 WEEKS
     Route: 042
     Dates: start: 20251001
  4. IXIFI [Suspect]
     Active Substance: INFLIXIMAB-QBTX
     Dosage: 400 MG, EVERY 7 WEEKS
     Route: 042
     Dates: start: 20251119

REACTIONS (8)
  - Atrial fibrillation [Recovered/Resolved]
  - Condition aggravated [Recovering/Resolving]
  - Influenza like illness [Unknown]
  - Headache [Unknown]
  - Dyspepsia [Unknown]
  - Off label use [Unknown]
  - Off label use [Unknown]
  - Intentional product use issue [Unknown]

NARRATIVE: CASE EVENT DATE: 20250101
